FAERS Safety Report 11590145 (Version 2)
Quarter: 2018Q1

REPORT INFORMATION
  Report Type: Spontaneous
  Country: US (occurrence: US)
  Receive Date: 20151002
  Receipt Date: 20180301
  Transmission Date: 20180508
  Serious: Yes (Other)
  Sender: FDA-Public Use
  Company Number: US-ASTRAZENECA-2015SE94213

PATIENT
  Sex: Male

DRUGS (1)
  1. TUDORZA PRESSAIR [Suspect]
     Active Substance: ACLIDINIUM BROMIDE
     Dosage: ONE PUFF IN THE MORNING AND ONE PUFF IN THE EVENING
     Route: 055

REACTIONS (4)
  - Device malfunction [Unknown]
  - Chemical eye injury [Unknown]
  - Cataract [Unknown]
  - Intentional device misuse [Unknown]
